FAERS Safety Report 26137005 (Version 2)
Quarter: 2025Q4

REPORT INFORMATION
  Report Type: Report from Study
  Country: US (occurrence: US)
  Receive Date: 20251209
  Receipt Date: 20251211
  Transmission Date: 20260117
  Serious: Yes (Hospitalization)
  Sender: ABBVIE
  Company Number: US-ABBVIE-6579105

PATIENT
  Age: 76 Year
  Sex: Female

DRUGS (13)
  1. VENCLEXTA [Suspect]
     Active Substance: VENETOCLAX
     Indication: Acute myeloid leukaemia
     Route: 048
     Dates: start: 20251107
  2. ACYCLOVIR [Concomitant]
     Active Substance: ACYCLOVIR
     Indication: Product used for unknown indication
     Route: 048
  3. ATORVASTATIN [Concomitant]
     Active Substance: ATORVASTATIN
     Indication: Product used for unknown indication
  4. MINOXIDIL [Concomitant]
     Active Substance: MINOXIDIL
     Indication: Product used for unknown indication
  5. EXEMESTANE [Concomitant]
     Active Substance: EXEMESTANE
     Indication: Product used for unknown indication
  6. LISINOPRIL AND HYDROCHLOROTHIAZIDE [Concomitant]
     Active Substance: HYDROCHLOROTHIAZIDE\LISINOPRIL
     Indication: Product used for unknown indication
     Dosage: 20 MG/25MG
  7. POSACONAZOLE [Concomitant]
     Active Substance: POSACONAZOLE
     Indication: Product used for unknown indication
     Dosage: 3 TABS BY MOUTH WITH LUNCH
     Route: 048
  8. VERZENIO [Concomitant]
     Active Substance: ABEMACICLIB
     Indication: Product used for unknown indication
  9. VITAMIN D3 [Concomitant]
     Active Substance: CHOLECALCIFEROL
     Indication: Product used for unknown indication
  10. VORICONAZOLE [Concomitant]
     Active Substance: VORICONAZOLE
     Indication: Product used for unknown indication
  11. VORICONAZOLE [Concomitant]
     Active Substance: VORICONAZOLE
     Indication: Acute myeloid leukaemia
     Dates: start: 20251126
  12. CLADRIBINE [Concomitant]
     Active Substance: CLADRIBINE
     Indication: Acute myeloid leukaemia
     Dates: start: 20251113
  13. POSACONAZOLE [Concomitant]
     Active Substance: POSACONAZOLE
     Indication: Acute leukaemia
     Dates: start: 20251111

REACTIONS (16)
  - Oropharyngeal pain [Not Recovered/Not Resolved]
  - Nausea [Not Recovered/Not Resolved]
  - Pancytopenia [Not Recovered/Not Resolved]
  - Neutropenia [Not Recovered/Not Resolved]
  - Transaminases increased [Not Recovered/Not Resolved]
  - Product use issue [Not Recovered/Not Resolved]
  - Anaemia [Not Recovered/Not Resolved]
  - Essential hypertension [Not Recovered/Not Resolved]
  - Hyperlipidaemia [Not Recovered/Not Resolved]
  - Insomnia [Not Recovered/Not Resolved]
  - Constipation [Not Recovered/Not Resolved]
  - Metabolic disorder [Not Recovered/Not Resolved]
  - Immunodeficiency [Not Recovered/Not Resolved]
  - Hepatitis viral [Not Recovered/Not Resolved]
  - Stress [Unknown]
  - Emotional distress [Unknown]

NARRATIVE: CASE EVENT DATE: 20250101
